FAERS Safety Report 4862800-3 (Version None)
Quarter: 2005Q4

REPORT INFORMATION
  Report Type: 
  Country: None (occurrence: None)
  Receive Date: 20051221
  Receipt Date: 20051007
  Transmission Date: 20060501
  Serious: No
  Sender: FDA-Public Use
  Company Number: US-BRISTOL-MYERS SQUIBB COMPANY-13140413

PATIENT
  Age: 35 Year
  Sex: Female

DRUGS (1)
  1. REYATAZ [Suspect]

REACTIONS (2)
  - ANOREXIA [None]
  - BLOOD BILIRUBIN INCREASED [None]
